FAERS Safety Report 8362908-4 (Version None)
Quarter: 2012Q2

REPORT INFORMATION
  Report Type: 
  Country: None (occurrence: None)
  Receive Date: 20120516
  Receipt Date: 20120509
  Transmission Date: 20120825
  Serious: Yes (Hospitalization)
  Sender: FDA-Public Use
  Company Number: JP-ABBOTT-12P-087-0933878-00

PATIENT
  Sex: Female

DRUGS (3)
  1. HUMIRA [Suspect]
     Indication: ANKYLOSING SPONDYLITIS
     Route: 058
     Dates: start: 20111208, end: 20120308
  2. DICLOFENAC SODIUM [Concomitant]
     Indication: ANKYLOSING SPONDYLITIS
     Dosage: 70 MG DAILY
     Route: 048
  3. BUPRENORPHINE HCL [Concomitant]
     Indication: ANKYLOSING SPONDYLITIS
     Dosage: 0.2 MG DAILY
     Route: 054

REACTIONS (1)
  - GASTRIC PERFORATION [None]
